FAERS Safety Report 9483479 (Version 1)
Quarter: 2013Q3

REPORT INFORMATION
  Report Type: Spontaneous
  Country: US (occurrence: US)
  Receive Date: 20130828
  Receipt Date: 20130828
  Transmission Date: 20140515
  Serious: Yes (Death)
  Sender: FDA-Public Use
  Company Number: US-AMGEN-KDL270950

PATIENT
  Age: 83 Year
  Sex: Female

DRUGS (13)
  1. PROCRIT [Suspect]
     Indication: MYELODYSPLASTIC SYNDROME
     Dosage: 60000 IU, QWK
     Route: 065
  2. ACETYLSALICYLIC ACID [Concomitant]
  3. CLOPIDOGREL BISULFATE [Concomitant]
  4. FUROSEMIDE [Concomitant]
  5. UNSPECIFIED THYROID MEDICATION [Concomitant]
  6. ISOSORBIDE MONONITRATE [Concomitant]
  7. LOSARTAN POTASSIUM [Concomitant]
  8. AMLODIPINE BESILATE [Concomitant]
  9. KLORPROMAN [Concomitant]
  10. CALCIUM [Concomitant]
  11. SERTRALINE HYDROCHLORIDE [Concomitant]
  12. PANTOPRAZOLE SODIUM [Concomitant]
  13. UNSPECIFIED MEDICATION [Concomitant]

REACTIONS (1)
  - Death [Fatal]
